FAERS Safety Report 14871639 (Version 1)
Quarter: 2018Q2

REPORT INFORMATION
  Report Type: Spontaneous
  Country: IT (occurrence: IT)
  Receive Date: 20180509
  Receipt Date: 20180509
  Transmission Date: 20180711
  Serious: Yes (Other)
  Sender: FDA-Public Use
  Company Number: IT-TEVA-2018-IT-891246

PATIENT
  Age: 2 Year
  Sex: Female

DRUGS (1)
  1. CEFACLOR. [Suspect]
     Active Substance: CEFACLOR
     Indication: PHARYNGITIS
     Dosage: 60 MG/KG DAILY;
     Route: 048

REACTIONS (1)
  - Petit mal epilepsy [Recovered/Resolved]
